FAERS Safety Report 24122340 (Version 2)
Quarter: 2025Q1

REPORT INFORMATION
  Report Type: Spontaneous
  Country: FR (occurrence: FR)
  Receive Date: 20240723
  Receipt Date: 20250213
  Transmission Date: 20250409
  Serious: Yes (Death, Life-Threatening, Hospitalization, Other)
  Sender: AUROBINDO
  Company Number: FR-SA-2015SA019322

PATIENT
  Age: 46 Year
  Sex: Female
  Weight: 85 kg

DRUGS (12)
  1. AMOXICILLIN\CLAVULANIC ACID [Suspect]
     Active Substance: AMOXICILLIN\CLAVULANIC ACID
     Indication: Product used for unknown indication
     Route: 048
     Dates: start: 20150211, end: 20150212
  2. AUBAGIO [Suspect]
     Active Substance: TERIFLUNOMIDE
     Indication: Multiple sclerosis relapse
     Dosage: 14 MILLIGRAM, ONCE A DAY
     Route: 048
     Dates: start: 20150113, end: 20150215
  3. LEVOFLOXACIN [Concomitant]
     Active Substance: LEVOFLOXACIN
     Indication: Product used for unknown indication
     Route: 065
     Dates: start: 20150213
  4. HYDROXYZINE [Concomitant]
     Active Substance: HYDROXYZINE HYDROCHLORIDE
     Indication: Product used for unknown indication
     Route: 065
  5. IBUPROFEN [Concomitant]
     Active Substance: IBUPROFEN
     Indication: Product used for unknown indication
     Route: 065
  6. Solupred [Concomitant]
     Indication: Product used for unknown indication
     Route: 065
  7. ESOMEPRAZOLE MAGNESIUM [Concomitant]
     Active Substance: ESOMEPRAZOLE MAGNESIUM
     Indication: Product used for unknown indication
     Route: 065
  8. CEFOTAXIME SODIUM [Concomitant]
     Active Substance: CEFOTAXIME SODIUM
     Indication: Product used for unknown indication
     Route: 065
     Dates: start: 20150213, end: 20150213
  9. ACETAMINOPHEN [Concomitant]
     Active Substance: ACETAMINOPHEN
     Indication: Product used for unknown indication
     Route: 048
     Dates: start: 201502, end: 20150212
  10. QUESTRAN [Concomitant]
     Active Substance: CHOLESTYRAMINE
     Indication: Product used for unknown indication
     Route: 065
  11. METRONIDAZOLE [Concomitant]
     Active Substance: METRONIDAZOLE
     Indication: Product used for unknown indication
     Route: 065
     Dates: start: 20150213, end: 20150213
  12. ECONAZOLE [Concomitant]
     Active Substance: ECONAZOLE
     Indication: Product used for unknown indication
     Route: 065

REACTIONS (31)
  - Skin plaque [Fatal]
  - Erythema [Fatal]
  - Conjunctivitis [Fatal]
  - Nasal mucosal ulcer [Fatal]
  - Lip oedema [Fatal]
  - Mouth ulceration [Fatal]
  - Mucosal ulceration [Fatal]
  - Mucosal erosion [Fatal]
  - Vulvovaginal inflammation [Fatal]
  - Acute respiratory distress syndrome [Fatal]
  - Pyrexia [Fatal]
  - Odynophagia [Fatal]
  - Dysphagia [Fatal]
  - Urticaria [Fatal]
  - Hypoxia [Fatal]
  - Toxic epidermal necrolysis [Fatal]
  - Catarrh [Fatal]
  - Rash maculo-papular [Fatal]
  - Laryngeal dyspnoea [Fatal]
  - Dyspnoea [Fatal]
  - Skin lesion [Fatal]
  - Blister [Fatal]
  - Eyelid oedema [Fatal]
  - Rash erythematous [Fatal]
  - Neutropenia [Fatal]
  - Shock [Fatal]
  - Acute kidney injury [Fatal]
  - Multiple organ dysfunction syndrome [Fatal]
  - Metabolic acidosis [Fatal]
  - Acidosis hyperchloraemic [Fatal]
  - Hypernatraemia [Fatal]

NARRATIVE: CASE EVENT DATE: 20150201
